FAERS Safety Report 9067104 (Version 1)
Quarter: 2013Q1

REPORT INFORMATION
  Report Type: Report from Study
  Country: US (occurrence: US)
  Receive Date: 20130131
  Receipt Date: 20130131
  Transmission Date: 20140127
  Serious: No
  Sender: FDA-Public Use
  Company Number: US-ABBOTT-12P-163-1001538-00

PATIENT
  Age: 57 Year
  Sex: Male

DRUGS (7)
  1. HUMIRA [Suspect]
     Indication: ANKYLOSING SPONDYLITIS
     Dates: start: 20121015
  2. HYDROCODONE [Concomitant]
     Indication: PAIN
     Dosage: 10/325MG
  3. NEURONTIN [Concomitant]
     Indication: PERIPHERAL COLDNESS
  4. NEURONTIN [Concomitant]
     Indication: DRY SKIN
  5. NEURONTIN [Concomitant]
     Indication: LACERATION
  6. SOMA [Concomitant]
     Indication: MUSCLE RELAXANT THERAPY
  7. XANAX [Concomitant]
     Indication: ANXIETY

REACTIONS (3)
  - Sinusitis [Not Recovered/Not Resolved]
  - Headache [Unknown]
  - Abdominal pain [Unknown]
